FAERS Safety Report 19100350 (Version 1)
Quarter: 2021Q2

REPORT INFORMATION
  Report Type: Report from Study
  Country: US (occurrence: US)
  Receive Date: 20210407
  Receipt Date: 20210407
  Transmission Date: 20210717
  Serious: Yes (Hospitalization)
  Sender: FDA-Public Use
  Company Number: US-JNJFOC-20210356522

PATIENT
  Age: 57 Year
  Sex: Female

DRUGS (4)
  1. SPRAVATO [Suspect]
     Active Substance: ESKETAMINE
     Indication: DEPRESSION
     Dates: start: 20201228, end: 20201228
  2. SPRAVATO [Suspect]
     Active Substance: ESKETAMINE
     Dates: start: 20210324, end: 20210324
  3. SPRAVATO [Suspect]
     Active Substance: ESKETAMINE
     Dates: start: 20201230, end: 20201230
  4. SPRAVATO [Suspect]
     Active Substance: ESKETAMINE
     Dates: start: 20210104, end: 20210310

REACTIONS (1)
  - Coronary arterial stent insertion [Recovered/Resolved]

NARRATIVE: CASE EVENT DATE: 20210319
